FAERS Safety Report 7689585-X (Version None)
Quarter: 2011Q3

REPORT INFORMATION
  Report Type: 
  Country: None (occurrence: None)
  Receive Date: 20110817
  Receipt Date: 20110809
  Transmission Date: 20111222
  Serious: Yes (Other)
  Sender: FDA-Public Use
  Company Number: US-US-EMD SERONO, INC.-7052434

PATIENT
  Sex: Female

DRUGS (6)
  1. ANALGESIC [Concomitant]
     Indication: INFLUENZA LIKE ILLNESS
  2. NAPROXEN (ALEVE) [Concomitant]
     Indication: BACK PAIN
  3. ASPIRIN [Concomitant]
  4. REBIF [Suspect]
     Indication: MULTIPLE SCLEROSIS
     Route: 058
     Dates: start: 20101004
  5. CYMBALTA [Concomitant]
     Indication: PAIN
  6. UNSPECIFIED CHOLESTEROL MEDICATION [Concomitant]
     Indication: BLOOD CHOLESTEROL

REACTIONS (5)
  - BLOOD CHOLESTEROL INCREASED [None]
  - NERVE INJURY [None]
  - INFLUENZA LIKE ILLNESS [None]
  - SYNOVIAL CYST [None]
  - PAIN IN EXTREMITY [None]
